FAERS Safety Report 18978990 (Version 1)
Quarter: 2021Q1

REPORT INFORMATION
  Report Type: Spontaneous
  Country: GR (occurrence: GR)
  Receive Date: 20210308
  Receipt Date: 20210308
  Transmission Date: 20210420
  Serious: Yes (Other)
  Sender: FDA-Public Use
  Company Number: GR-TAKEDA-2021TUS011909

PATIENT
  Age: 78 Year
  Sex: Male

DRUGS (1)
  1. ENTYVIO [Suspect]
     Active Substance: VEDOLIZUMAB
     Indication: COLITIS ULCERATIVE
     Dosage: UNK
     Route: 065

REACTIONS (5)
  - Metastases to bone [Unknown]
  - Bladder mass [Unknown]
  - Gastrointestinal inflammation [Unknown]
  - Metastases to lung [Unknown]
  - Prostatic mass [Unknown]
